FAERS Safety Report 24566801 (Version 1)
Quarter: 2024Q4

REPORT INFORMATION
  Report Type: Spontaneous
  Country: US (occurrence: None)
  Receive Date: 20241030
  Receipt Date: 20241030
  Transmission Date: 20250114
  Serious: Yes (Hospitalization)
  Sender: Public
  Company Number: None

PATIENT
  Age: 42 Year
  Sex: Male

DRUGS (19)
  1. FASENRA [Suspect]
     Active Substance: BENRALIZUMAB
     Indication: Asthma
     Dosage: OTHER FREQUENCY : EVERY4WEEKS;?
     Route: 058
     Dates: start: 20240906
  2. DIAZEPA [Concomitant]
  3. BUSPIRONE 10MG TABLETS [Concomitant]
  4. ESCITALOPRAM OXALATE [Concomitant]
     Active Substance: ESCITALOPRAM OXALATE
  5. TRAZODONE [Concomitant]
     Active Substance: TRAZODONE HYDROCHLORIDE
  6. LEVALBUTEROL 1.25MG/3ML NEB 25X3ML [Concomitant]
  7. LEVALBUTEROL HFA INH (200PF) 15GM [Concomitant]
  8. LEVOCETIRIZINE 5MG TABLETS [Concomitant]
  9. ZOLPIDEM 5MG TABLETS [Concomitant]
  10. TRIKAFTA [Concomitant]
     Active Substance: ELEXACAFTOR\IVACAFTOR\TEZACAFTOR
  11. PULMOZYME [Concomitant]
     Active Substance: DORNASE ALFA
  12. CAYSTON [Concomitant]
     Active Substance: AZTREONAM
  13. TOBRAMYCIN [Concomitant]
     Active Substance: TOBRAMYCIN\TOBRAMYCIN SULFATE
  14. sodium chloride neb solution [Concomitant]
  15. creon 36 [Concomitant]
  16. LEVALBUTEROL [Concomitant]
     Active Substance: LEVALBUTEROL
  17. SYMBICORT [Concomitant]
     Active Substance: BUDESONIDE\FORMOTEROL FUMARATE DIHYDRATE
  18. MONTELUKAST [Concomitant]
     Active Substance: MONTELUKAST
  19. ESOMEPRAZOLE [Concomitant]
     Active Substance: ESOMEPRAZOLE

REACTIONS (1)
  - Upper respiratory tract infection [None]

NARRATIVE: CASE EVENT DATE: 20241018
